FAERS Safety Report 12781646 (Version 1)
Quarter: 2016Q3

REPORT INFORMATION
  Report Type: Spontaneous
  Country: SK (occurrence: SK)
  Receive Date: 20160926
  Receipt Date: 20160926
  Transmission Date: 20161109
  Serious: Yes (Other)
  Sender: FDA-Public Use
  Company Number: SK-JNJFOC-20160925096

PATIENT
  Age: 79 Year
  Sex: Male

DRUGS (1)
  1. XARELTO [Suspect]
     Active Substance: RIVAROXABAN
     Indication: DEEP VEIN THROMBOSIS
     Route: 048
     Dates: start: 2015

REACTIONS (4)
  - Deep vein thrombosis [Unknown]
  - Intentional product misuse [Unknown]
  - Large intestinal polypectomy [Unknown]
  - Renal neoplasm [Unknown]

NARRATIVE: CASE EVENT DATE: 201511
